FAERS Safety Report 19710988 (Version 1)
Quarter: 2021Q3

REPORT INFORMATION
  Report Type: Spontaneous
  Country: US (occurrence: US)
  Receive Date: 20210816
  Receipt Date: 20210816
  Transmission Date: 20211014
  Serious: Yes (Hospitalization)
  Sender: FDA-Public Use
  Company Number: US-ELITE LABORATORIES INC.-2021ELT00127

PATIENT
  Age: 55 Year
  Sex: Female

DRUGS (1)
  1. PHENTERMINE. [Suspect]
     Active Substance: PHENTERMINE
     Indication: WEIGHT DECREASED
     Dosage: 37.5 MG, 1X/DAY
     Route: 065

REACTIONS (3)
  - Pseudomembranous colitis [Recovered/Resolved]
  - Acute kidney injury [Recovered/Resolved]
  - Intestinal ischaemia [Recovered/Resolved]
